FAERS Safety Report 9312373 (Version 2)
Quarter: 2013Q3

REPORT INFORMATION
  Report Type: Spontaneous
  Country: AU (occurrence: AU)
  Receive Date: 20130528
  Receipt Date: 20130809
  Transmission Date: 20140515
  Serious: Yes (Hospitalization)
  Sender: FDA-Public Use
  Company Number: AU-ABBOTT-13P-008-1093391-00

PATIENT
  Age: 55 Year
  Sex: 0

DRUGS (1)
  1. LUCRIN DEPOT [Suspect]
     Indication: PROSTATE CANCER
     Dates: start: 20130220

REACTIONS (4)
  - Infected varicose vein [Unknown]
  - Infection [Unknown]
  - Local swelling [Recovered/Resolved with Sequelae]
  - Vasculitis [Unknown]
